FAERS Safety Report 7309061-3 (Version None)
Quarter: 2011Q1

REPORT INFORMATION
  Report Type: 
  Country: None (occurrence: None)
  Receive Date: 20110223
  Receipt Date: 20110208
  Transmission Date: 20110831
  Serious: Yes (Other)
  Sender: FDA-Public Use
  Company Number: US-BAYER-2011-014889

PATIENT

DRUGS (1)
  1. BETASERON [Suspect]

REACTIONS (1)
  - BASAL CELL CARCINOMA [None]
